FAERS Safety Report 8952695 (Version 2)
Quarter: 2012Q4

REPORT INFORMATION
  Report Type: 
  Country: ES (occurrence: ES)
  Receive Date: 20121205
  Receipt Date: 20121218
  Transmission Date: 20130627
  Serious: Yes (Other)
  Sender: FDA-Public Use
  Company Number: ES-UCBSA-072082

PATIENT
  Age: 29 Year
  Sex: Female

DRUGS (4)
  1. KEPPRA [Suspect]
     Indication: JUVENILE MYOCLONIC EPILEPSY
     Dates: end: 2012
  2. KEPPRA [Suspect]
     Indication: JUVENILE MYOCLONIC EPILEPSY
     Dosage: DOSE INCREASED
  3. LAMOTRIGINE [Concomitant]
     Indication: JUVENILE MYOCLONIC EPILEPSY
  4. VALPROIC ACID [Concomitant]
     Indication: JUVENILE MYOCLONIC EPILEPSY

REACTIONS (1)
  - Status epilepticus [Recovered/Resolved]
